FAERS Safety Report 4714168-0 (Version None)
Quarter: 2005Q3

REPORT INFORMATION
  Report Type: 
  Country: None (occurrence: None)
  Receive Date: 20050714
  Receipt Date: 20050528
  Transmission Date: 20060218
  Serious: Yes (Hospitalization, Other)
  Sender: FDA-Public Use
  Company Number: US-ABBOTT-05P-163-0301902-00

PATIENT
  Sex: Female
  Weight: 63.106 kg

DRUGS (3)
  1. HUMIRA [Suspect]
     Indication: RHEUMATOID ARTHRITIS
     Route: 058
     Dates: start: 20050405, end: 20050523
  2. METOPROLOL TARTRATE [Concomitant]
     Indication: CARDIAC DISORDER
     Route: 048
  3. LANSOPRAZOLE [Concomitant]
     Indication: GASTRIC DISORDER
     Route: 048

REACTIONS (6)
  - ABDOMINAL PAIN LOWER [None]
  - ARTHRITIS [None]
  - GAIT DISTURBANCE [None]
  - LUNG INFECTION [None]
  - LUNG NEOPLASM [None]
  - PYREXIA [None]
